FAERS Safety Report 7363202-0 (Version None)
Quarter: 2011Q1

REPORT INFORMATION
  Report Type: 
  Country: None (occurrence: None)
  Receive Date: 20110321
  Receipt Date: 20110316
  Transmission Date: 20110831
  Serious: Yes (Hospitalization, Other)
  Sender: FDA-Public Use
  Company Number: BE-ABBOTT-07P-013-0357585-00

PATIENT
  Sex: Female

DRUGS (20)
  1. HUMIRA [Suspect]
     Indication: RHEUMATOID ARTHRITIS
     Route: 058
     Dates: start: 19980701
  2. HUMIRA [Suspect]
     Route: 058
  3. CONTRAMAL [Concomitant]
     Indication: RHEUMATOID ARTHRITIS
     Dates: end: 20060901
  4. OMEPRAZOLE [Concomitant]
     Indication: PRODUCT USED FOR UNKNOWN INDICATION
  5. FOSAVANCE [Concomitant]
     Indication: PRODUCT USED FOR UNKNOWN INDICATION
  6. CACO3 [Concomitant]
     Indication: PRODUCT USED FOR UNKNOWN INDICATION
  7. DEPRONAL [Concomitant]
     Indication: RHEUMATOID ARTHRITIS
     Dates: end: 20060901
  8. ALPRAZOLAM [Concomitant]
     Indication: PRODUCT USED FOR UNKNOWN INDICATION
  9. AIRTAL [Concomitant]
     Indication: RHEUMATOID ARTHRITIS
  10. BISOPROLOL [Concomitant]
     Indication: PRODUCT USED FOR UNKNOWN INDICATION
  11. D-CURE [Concomitant]
     Indication: PRODUCT USED FOR UNKNOWN INDICATION
  12. DURAGESIC-50 [Concomitant]
     Indication: PRODUCT USED FOR UNKNOWN INDICATION
  13. MEDROL [Concomitant]
     Indication: RHEUMATOID ARTHRITIS
  14. LORMETAZEPAM [Concomitant]
     Indication: PRODUCT USED FOR UNKNOWN INDICATION
  15. DAFALGAN [Concomitant]
     Indication: PRODUCT USED FOR UNKNOWN INDICATION
  16. AIRTAL [Concomitant]
  17. BISOPROLOL [Concomitant]
  18. ALDACTAZINE [Concomitant]
     Indication: PRODUCT USED FOR UNKNOWN INDICATION
  19. OMEPRAZOLE [Concomitant]
  20. ALPRAZOLAM [Concomitant]

REACTIONS (12)
  - SCIATICA [None]
  - SPINAL FRACTURE [None]
  - ARTHRITIS BACTERIAL [None]
  - OSTEOPOROSIS [None]
  - BACK PAIN [None]
  - PATHOLOGICAL FRACTURE [None]
  - MOBILITY DECREASED [None]
  - LIPOMA [None]
  - ARTHRALGIA [None]
  - ARTHRITIS SALMONELLA [None]
  - BREATH SOUNDS ABNORMAL [None]
  - LUMBAR VERTEBRAL FRACTURE [None]
